FAERS Safety Report 9677773 (Version 1)
Quarter: 2013Q4

REPORT INFORMATION
  Report Type: Spontaneous
  Country: US (occurrence: US)
  Receive Date: 20131108
  Receipt Date: 20131108
  Transmission Date: 20140711
  Serious: Yes (Other)
  Sender: FDA-Public Use
  Company Number: US-MALLINCKRODT-T201304748

PATIENT
  Age: 31 Year
  Sex: Female

DRUGS (10)
  1. METHADONE [Suspect]
     Indication: BACK PAIN
     Dosage: 5 MG, Q6H
     Route: 048
  2. METHADONE [Suspect]
     Indication: ABDOMINAL PAIN
  3. METHADONE [Suspect]
     Indication: DRUG WITHDRAWAL SYNDROME
  4. HALOPERIDOL [Suspect]
     Indication: AGITATION
     Dosage: 5 MG, UNK
     Route: 042
  5. HALOPERIDOL [Suspect]
     Dosage: AS NEEDED (AVERAGE DAILY DOSE 4MG)
     Route: 042
  6. OLANZAPINE [Suspect]
     Indication: AGITATION
     Route: 048
  7. OLANZAPINE [Suspect]
     Indication: DELIRIUM
  8. ONDANSETRON [Suspect]
     Indication: NAUSEA
     Route: 065
  9. METHADONE [Concomitant]
     Indication: DRUG WITHDRAWAL SYNDROME
     Dosage: 10 MG, 3 DOSES OVER 12H (30MG)
     Route: 042
  10. HYDROMORPHONE [Concomitant]
     Indication: PRODUCT USED FOR UNKNOWN INDICATION
     Route: 065

REACTIONS (4)
  - Unresponsive to stimuli [Recovered/Resolved]
  - Torsade de pointes [Recovered/Resolved]
  - Nodal rhythm [Unknown]
  - Ventricular extrasystoles [Unknown]
